FAERS Safety Report 24265417 (Version 1)
Quarter: 2024Q3

REPORT INFORMATION
  Report Type: Spontaneous
  Country: US (occurrence: US)
  Receive Date: 20240829
  Receipt Date: 20240829
  Transmission Date: 20241016
  Serious: No
  Sender: SANOFI AVENTIS
  Company Number: US-SANOFI-02189529

PATIENT
  Age: 49 Year
  Sex: Female

DRUGS (2)
  1. CEREZYME [Suspect]
     Active Substance: IMIGLUCERASE
     Indication: Gaucher^s disease type I
     Dosage: 60 MG/KG, QOW
  2. CEREZYME [Suspect]
     Active Substance: IMIGLUCERASE
     Dosage: 30 MG/KG, QW

REACTIONS (3)
  - Pain [Unknown]
  - Therapeutic response shortened [Unknown]
  - Tremor [Unknown]

NARRATIVE: CASE EVENT DATE: 20240101
